FAERS Safety Report 7232743-9 (Version None)
Quarter: 2011Q1

REPORT INFORMATION
  Report Type: 
  Country: None (occurrence: None)
  Receive Date: 20110106
  Receipt Date: 20101224
  Transmission Date: 20110831
  Serious: Yes (Life-Threatening, Hospitalization, Other)
  Sender: FDA-Public Use
  Company Number: 2010SP065485

PATIENT
  Age: 56 Year
  Sex: Male

DRUGS (5)
  1. CYTARABINE [Concomitant]
  2. FLUDARA [Concomitant]
  3. IDARUBICIN [Concomitant]
  4. NOXAFIL [Suspect]
     Indication: PROPHYLAXIS
     Dosage: Q12H;
     Dates: start: 20101116, end: 20101123
  5. FILGRASTIM [Concomitant]

REACTIONS (7)
  - FEBRILE NEUTROPENIA [None]
  - BACTERAEMIA [None]
  - HEPATOTOXICITY [None]
  - BRONCHOPULMONARY ASPERGILLOSIS [None]
  - SYSTEMIC CANDIDA [None]
  - HEPATIC ENZYME INCREASED [None]
  - ASPERGILLOSIS [None]
